FAERS Safety Report 14883986 (Version 3)
Quarter: 2021Q3

REPORT INFORMATION
  Report Type: Spontaneous
  Country: US (occurrence: US)
  Receive Date: 20180511
  Receipt Date: 20210820
  Transmission Date: 20211014
  Serious: Yes (Disabling)
  Sender: FDA-Public Use
  Company Number: US-TEVA-2018-US-890033

PATIENT
  Age: 61 Year
  Sex: Female
  Weight: 63.5 kg

DRUGS (8)
  1. DOCETAXEL SAGENT [Suspect]
     Active Substance: DOCETAXEL
     Indication: BREAST CANCER FEMALE
     Dosage: DOSAGE: 122 MG, NO OF CYCLES: 04, FREQUENCY: EVERY 3 WEEKS, FIRST CYCLE
     Route: 065
     Dates: start: 20141226, end: 20141226
  2. DOCETAXEL SAGENT [Suspect]
     Active Substance: DOCETAXEL
     Dosage: DOSAGE: 122 MG, NO OF CYCLES: 04, FREQUENCY: EVERY 3 WEEKS, FIRST AND SECOND CYCLE
     Route: 065
     Dates: start: 20141226, end: 20150116
  3. CYTOXAN [Concomitant]
     Active Substance: CYCLOPHOSPHAMIDE
     Indication: BREAST CANCER FEMALE
     Dosage: DOSAGE: 978 MG, NO OF CYCLES: 04, FREQUENCY: EVERY 3 WEEKS
     Route: 065
     Dates: start: 20141226, end: 20150226
  4. ACYCLOVIR. [Concomitant]
     Active Substance: ACYCLOVIR
     Dosage: TAKE 1 TABLET BY MOUTH 3 TIMES DAILY.TAKE FOR 5 DAYS AS NEEDED, TAKE AT ONSET OF SYMPTOMS
     Route: 048
     Dates: start: 20140326
  5. DOCETAXEL WINTHROP [Suspect]
     Active Substance: DOCETAXEL
     Indication: BREAST CANCER FEMALE
     Dosage: DOSAGE: 122 MG, NO OF CYCLES: 04, FREQUENCY: EVERY 3 WEEKS, SECOND, THIRD AND FOURTH CYCLE
     Route: 065
     Dates: start: 20150116, end: 20150227
  6. LOVASTATIN. [Concomitant]
     Active Substance: LOVASTATIN
     Dosage: 1 TAB DAILY, ONGOING
     Route: 048
     Dates: start: 20140914
  7. LISINOPRIL. [Concomitant]
     Active Substance: LISINOPRIL
     Dosage: TAKE 1 TABLET BY MOUTH EVERY EVENING, ONGOING
     Route: 048
     Dates: start: 20140914
  8. DOCETAXEL WINTHROP [Suspect]
     Active Substance: DOCETAXEL
     Dosage: DOSAGE: 122 MG, NO OF CYCLES: 04, FREQUENCY: EVERY 3 WEEKS, THIRD AND FOURTH CYCLE
     Route: 065
     Dates: start: 20150206, end: 20150227

REACTIONS (4)
  - Alopecia areata [Not Recovered/Not Resolved]
  - Madarosis [Not Recovered/Not Resolved]
  - Hair texture abnormal [Not Recovered/Not Resolved]
  - Hair colour changes [Not Recovered/Not Resolved]

NARRATIVE: CASE EVENT DATE: 201502
